FAERS Safety Report 5360604-9 (Version None)
Quarter: 2007Q2

REPORT INFORMATION
  Report Type: 
  Country: None (occurrence: None)
  Receive Date: 20070618
  Receipt Date: 20070608
  Transmission Date: 20071010
  Serious: Yes (Other)
  Sender: FDA-Public Use
  Company Number: PHEH2007US08561

PATIENT
  Age: 9 Year
  Sex: Female

DRUGS (1)
  1. TRILEPTAL [Suspect]
     Dosage: 1200 MG, QD
     Dates: start: 20020101

REACTIONS (3)
  - DIPLOPIA [None]
  - MYOPIA [None]
  - VISUAL ACUITY REDUCED [None]
